FAERS Safety Report 7458559-6 (Version None)
Quarter: 2011Q2

REPORT INFORMATION
  Report Type: 
  Country: None (occurrence: None)
  Receive Date: 20110504
  Receipt Date: 20110503
  Transmission Date: 20111010
  Serious: Yes (Other)
  Sender: FDA-Public Use
  Company Number: US-ROXANE LABORATORIES, INC.-2011-RO-00611RO

PATIENT
  Age: 54 Year
  Sex: Female

DRUGS (1)
  1. METHADONE [Suspect]

REACTIONS (1)
  - DRUG DIVERSION [None]
